FAERS Safety Report 14976675 (Version 4)
Quarter: 2018Q2

REPORT INFORMATION
  Report Type: Spontaneous
  Country: US (occurrence: US)
  Receive Date: 20180605
  Receipt Date: 20180629
  Transmission Date: 20180711
  Serious: Yes (Hospitalization)
  Sender: FDA-Public Use
  Company Number: US-ACTELION-A-NJ2018-168385

PATIENT
  Age: 48 Year
  Sex: Female

DRUGS (13)
  1. ADCIRCA [Concomitant]
     Active Substance: TADALAFIL
  2. SPIRONOLACTONE. [Concomitant]
     Active Substance: SPIRONOLACTONE
  3. KEFLEX [Concomitant]
     Active Substance: CEPHALEXIN
  4. VELETRI [Suspect]
     Active Substance: EPOPROSTENOL
     Indication: PULMONARY ARTERIAL HYPERTENSION
     Dosage: 12 NG/KG, PER MIN
     Route: 042
     Dates: start: 20180201
  5. UPTRAVI [Concomitant]
     Active Substance: SELEXIPAG
  6. ASPIRIN. [Concomitant]
     Active Substance: ASPIRIN
  7. LINEZOLID. [Concomitant]
     Active Substance: LINEZOLID
  8. VELETRI [Suspect]
     Active Substance: EPOPROSTENOL
     Dosage: 14 MG/KG, PER MIN
     Route: 042
     Dates: start: 20170810
  9. LETAIRIS [Suspect]
     Active Substance: AMBRISENTAN
     Indication: PULMONARY ARTERIAL HYPERTENSION
     Dosage: 10 MG, QD
     Route: 048
     Dates: start: 20170812
  10. PANTOPRAZOLE [Concomitant]
     Active Substance: PANTOPRAZOLE
  11. LASIX [Concomitant]
     Active Substance: FUROSEMIDE
  12. VELETRI [Suspect]
     Active Substance: EPOPROSTENOL
     Dosage: 11 NG/KG, PER MIN
     Route: 042
     Dates: start: 20180201
  13. BACTRIM [Concomitant]
     Active Substance: SULFAMETHOXAZOLE\TRIMETHOPRIM

REACTIONS (16)
  - Catheter site inflammation [Unknown]
  - Platelet count decreased [Unknown]
  - Rash [Unknown]
  - Haemoglobin decreased [Unknown]
  - Chills [Recovered/Resolved]
  - Pain in extremity [Recovered/Resolved]
  - Catheter site rash [Unknown]
  - Device related infection [Recovered/Resolved]
  - Headache [Unknown]
  - Pain in jaw [Recovered/Resolved]
  - Catheter site erythema [Recovered/Resolved]
  - Fluid overload [Unknown]
  - Sepsis [Recovered/Resolved]
  - Cellulitis [Recovered/Resolved]
  - Flushing [Recovered/Resolved]
  - Application site irritation [Unknown]

NARRATIVE: CASE EVENT DATE: 20180215
